FAERS Safety Report 14462396 (Version 3)
Quarter: 2018Q1

REPORT INFORMATION
  Report Type: Report from Study
  Country: US (occurrence: US)
  Receive Date: 20180130
  Receipt Date: 20180309
  Transmission Date: 20180509
  Serious: Yes (Hospitalization)
  Sender: FDA-Public Use
  Company Number: US-ACTELION-A-NJ2018-166453

PATIENT
  Age: 35 Year
  Sex: Male
  Weight: 62.59 kg

DRUGS (2)
  1. VELETRI [Suspect]
     Active Substance: EPOPROSTENOL
     Indication: PULMONARY HYPERTENSION
     Dosage: 13.19 NG/KG, PER MIN
     Route: 042
     Dates: start: 20171122, end: 20180221
  2. REVATIO [Concomitant]
     Active Substance: SILDENAFIL CITRATE

REACTIONS (6)
  - Chest tube insertion [Unknown]
  - Dyspnoea exertional [Unknown]
  - Pneumothorax [Unknown]
  - Liver transplant [Recovering/Resolving]
  - Oxygen saturation decreased [Unknown]
  - Right ventricular failure [Unknown]

NARRATIVE: CASE EVENT DATE: 20180212
